FAERS Safety Report 12506789 (Version 1)
Quarter: 2016Q2

REPORT INFORMATION
  Report Type: Report from Study
  Country: FR (occurrence: FR)
  Receive Date: 20160628
  Receipt Date: 20160628
  Transmission Date: 20160815
  Serious: Yes (Hospitalization)
  Sender: FDA-Public Use
  Company Number: FR-ROCHE-1783970

PATIENT
  Sex: Male
  Weight: 76 kg

DRUGS (12)
  1. FLECAINE LP [Concomitant]
     Active Substance: FLECAINIDE
     Indication: ATRIAL FIBRILLATION
     Dosage: IN THE MORNING
     Route: 065
  2. AVLOCARDYL [Suspect]
     Active Substance: PROPRANOLOL HYDROCHLORIDE
     Indication: VARICES OESOPHAGEAL
     Dosage: IN THE MORNING
     Route: 065
     Dates: start: 20141105
  3. LYRICA [Concomitant]
     Active Substance: PREGABALIN
     Dosage: IN THE MORNING AND AT BEDTIME
     Route: 065
  4. HARVONI [Suspect]
     Active Substance: LEDIPASVIR\SOFOSBUVIR
     Indication: HEPATITIS C
     Dosage: 900 MG/400 MG
     Route: 065
     Dates: start: 20150128, end: 20150325
  5. LOXAPAC [Concomitant]
     Active Substance: LOXAPINE SUCCINATE
     Dosage: 15 DROPS IF NEEDED UNTIL THREE TIMES PER DAY
     Route: 065
  6. PREVISCAN (FRANCE) [Concomitant]
     Active Substance: FLUINDIONE
     Indication: ATRIAL FIBRILLATION
     Dosage: AT A QUARTER TABLET ON EVEN DAYS, HALF TABLET ON ODD DAYS
     Route: 065
  7. LOVENOX [Concomitant]
     Active Substance: ENOXAPARIN SODIUM
     Dosage: AT 8:00 AM AND 8:00 PM
     Route: 065
  8. RIBAVIRIN. [Suspect]
     Active Substance: RIBAVIRIN
     Indication: HEPATITIS C
     Dosage: IN THE MORNING AND AT BEDTIME
     Route: 065
     Dates: start: 20150128, end: 20150325
  9. IMOVANE [Concomitant]
     Active Substance: ZOPICLONE
     Dosage: 1 TABLET AT BEDTIME
     Route: 065
  10. PANTOPRAZOLE [Concomitant]
     Active Substance: PANTOPRAZOLE SODIUM
     Dosage: 1 TABLET IN THE EVENING
     Route: 065
  11. DOLIPRANE [Concomitant]
     Active Substance: ACETAMINOPHEN
     Dosage: 2 CAPSULES IF NEEDED
     Route: 065
  12. LAROXYL [Concomitant]
     Active Substance: AMITRIPTYLINE
     Dosage: IN THE EVENING/AT BED TIME
     Route: 065

REACTIONS (1)
  - Dementia [Not Recovered/Not Resolved]

NARRATIVE: CASE EVENT DATE: 20150414
